FAERS Safety Report 14798326 (Version 4)
Quarter: 2020Q1

REPORT INFORMATION
  Report Type: Spontaneous
  Country: US (occurrence: US)
  Receive Date: 20180424
  Receipt Date: 20200331
  Transmission Date: 20200409
  Serious: Yes (Other)
  Sender: FDA-Public Use
  Company Number: US-PFIZER INC-2018167345

PATIENT
  Age: 49 Year
  Sex: Male
  Weight: 118 kg

DRUGS (6)
  1. FLECTOR [Suspect]
     Active Substance: DICLOFENAC EPOLAMINE
     Dosage: UNK (5 PATCHES AS PRESCRIBED, 12 ON 12 OFF)
  2. HYDROCODONE [Concomitant]
     Active Substance: HYDROCODONE
     Indication: NECK PAIN
  3. FLECTOR [Suspect]
     Active Substance: DICLOFENAC EPOLAMINE
     Indication: BACK PAIN
     Dosage: FROM ONE PATCH AND ONE INCH STRIP APPLIED JUST ABOUT EVERY 12 AND A HALF HOURS
  4. HYDROCODONE [Concomitant]
     Active Substance: HYDROCODONE
     Indication: PAIN IN EXTREMITY
     Dosage: UNK
  5. FLECTOR [Suspect]
     Active Substance: DICLOFENAC EPOLAMINE
     Indication: INTERVERTEBRAL DISC DEGENERATION
     Dosage: UNK
  6. FLECTOR [Suspect]
     Active Substance: DICLOFENAC EPOLAMINE
     Indication: PAIN IN EXTREMITY
     Dosage: FROM ONE PATCH AND ONE INCH STRIP APPLIED JUST ABOUT EVERY 12 AND A HALF HOURS
     Dates: start: 2017

REACTIONS (6)
  - Bradyphrenia [Unknown]
  - Cerebrovascular accident [Unknown]
  - Arthritis [Unknown]
  - Product prescribing error [Unknown]
  - Pruritus [Unknown]
  - Intentional product misuse [Unknown]
